FAERS Safety Report 9300223 (Version 1)
Quarter: 2013Q2

REPORT INFORMATION
  Report Type: Report from Study
  Country: CA (occurrence: CA)
  Receive Date: 20130521
  Receipt Date: 20130521
  Transmission Date: 20140414
  Serious: Yes (Hospitalization)
  Sender: FDA-Public Use
  Company Number: PHHY2013CA049928

PATIENT
  Age: 79 Year
  Sex: Female

DRUGS (1)
  1. EXJADE [Suspect]
     Indication: MYELODYSPLASTIC SYNDROME
     Dosage: 1000 MG, QD
     Route: 048
     Dates: start: 201210

REACTIONS (5)
  - Hip fracture [Unknown]
  - Eating disorder [Unknown]
  - Weight decreased [Unknown]
  - Blood disorder [Unknown]
  - Malaise [Unknown]
